FAERS Safety Report 9617650 (Version 2)
Quarter: 2014Q1

REPORT INFORMATION
  Report Type: Report from Study
  Country: GB (occurrence: GB)
  Receive Date: 20131011
  Receipt Date: 20140228
  Transmission Date: 20141002
  Serious: Yes (Hospitalization)
  Sender: FDA-Public Use
  Company Number: GB-009507513-1310GBR002309

PATIENT
  Age: 67 Year
  Sex: Male
  Weight: 127.4 kg

DRUGS (7)
  1. DEXAMETHASONE SODIUM PHOSPHATE [Suspect]
     Indication: PLASMA CELL MYELOMA
     Dosage: UNK UNK, QD
  2. REVLIMID [Suspect]
     Indication: PLASMA CELL MYELOMA
     Dosage: 25 MG 1/1 DAYS
     Route: 048
     Dates: start: 20120911
  3. ASPIRIN [Concomitant]
     Indication: PRODUCT USED FOR UNKNOWN INDICATION
     Dosage: UNK
     Dates: start: 1987
  4. METFORMIN HYDROCHLORIDE [Concomitant]
     Indication: PRODUCT USED FOR UNKNOWN INDICATION
     Dosage: UNK
     Dates: start: 2010
  5. PREGABALIN [Concomitant]
     Indication: PRODUCT USED FOR UNKNOWN INDICATION
     Dosage: UNK
     Dates: start: 201108
  6. PROPRANOLOL HYDROCHLORIDE [Concomitant]
     Indication: PRODUCT USED FOR UNKNOWN INDICATION
     Dosage: UNK
     Dates: start: 2002
  7. SIMVASTATIN [Concomitant]
     Indication: PRODUCT USED FOR UNKNOWN INDICATION
     Dosage: UNK
     Dates: start: 201109

REACTIONS (1)
  - Lower respiratory tract infection [Recovered/Resolved]
